FAERS Safety Report 7763487-2 (Version None)
Quarter: 2011Q3

REPORT INFORMATION
  Report Type: 
  Country: None (occurrence: None)
  Receive Date: 20110920
  Receipt Date: 20110331
  Transmission Date: 20111222
  Serious: Yes (Hospitalization, Other)
  Sender: FDA-Public Use
  Company Number: US-BAYER-201014810NA

PATIENT
  Age: 42 Year
  Sex: Female
  Weight: 57.596 kg

DRUGS (7)
  1. SYNTHROID [Concomitant]
     Indication: THYROID DISORDER
     Dosage: UNK
     Dates: start: 20060101
  2. ASPIRIN [Concomitant]
     Indication: ANTICOAGULANT THERAPY
     Dosage: 81 MG, UNK
  3. VALTREX [Concomitant]
     Dosage: 500 MG, UNK
     Dates: start: 20080307
  4. DROSPIRENONE AND ETHINYL ESTRADIOL [Suspect]
     Indication: CONTRACEPTION
     Dosage: UNK
     Dates: start: 20080701
  5. OMEGA 3 FATTY ACIDS [Concomitant]
     Indication: HYPERLIPIDAEMIA
     Dosage: UNK
     Dates: start: 20060101
  6. RED YEAST RICE [Concomitant]
     Indication: BLOOD CHOLESTEROL ABNORMAL
     Dosage: UNK
  7. YASMIN [Suspect]
     Indication: CONTRACEPTION
     Dosage: UNK
     Route: 048
     Dates: start: 20060101, end: 20080101

REACTIONS (6)
  - PULMONARY EMBOLISM [None]
  - WEIGHT INCREASED [None]
  - THROMBOSIS [None]
  - PAIN [None]
  - CHEST PAIN [None]
  - THROMBOPHLEBITIS SUPERFICIAL [None]
